FAERS Safety Report 4539709-8 (Version None)
Quarter: 2004Q4

REPORT INFORMATION
  Report Type: 
  Country: None (occurrence: None)
  Receive Date: 20041228
  Receipt Date: 20041220
  Transmission Date: 20050328
  Serious: Yes (Hospitalization)
  Sender: FDA-Public Use
  Company Number: US-JNJFOC-20041205893

PATIENT
  Sex: Female
  Weight: 90.72 kg

DRUGS (5)
  1. DURAGESIC [Suspect]
     Route: 062
  2. DURAGESIC [Suspect]
     Route: 062
  3. VICODIN [Concomitant]
     Route: 049
     Dates: start: 20010101
  4. VICODIN [Concomitant]
     Indication: PAIN
     Dosage: 10/325 MG, 5 TO 6 PER DAY
     Route: 049
     Dates: start: 20010101
  5. PAXIL [Concomitant]
     Indication: DEPRESSION
     Route: 049
     Dates: start: 20040101

REACTIONS (3)
  - OPEN WOUND [None]
  - SPINAL LAMINECTOMY [None]
  - TREATMENT NONCOMPLIANCE [None]
